FAERS Safety Report 5256037-6 (Version None)
Quarter: 2007Q1

REPORT INFORMATION
  Report Type: 
  Country: None (occurrence: None)
  Receive Date: 20070302
  Receipt Date: 20070302
  Transmission Date: 20070707
  Serious: Yes (Hospitalization)
  Sender: FDA-Public Use
  Company Number: None

PATIENT
  Age: 82 Year
  Sex: Female
  Weight: 59.4212 kg

DRUGS (9)
  1. PREGABALIN 100MG [Suspect]
     Indication: NEUROPATHY PERIPHERAL
     Dosage: 100MG PO BID PERIPHERAL NEUROPATHY
     Route: 048
  2. OXYCODONE [Suspect]
     Indication: NEUROPATHY PERIPHERAL
     Dosage: 20MG PO BID
     Route: 048
  3. DIGOXIN [Concomitant]
  4. PRILOSEC [Concomitant]
  5. DYAZIDE [Concomitant]
  6. ELAVIL [Concomitant]
  7. METOPROLOL SUCCINATE [Concomitant]
  8. LEVOTHYROXINE SODIUM [Concomitant]
  9. OXYCONTIN [Concomitant]

REACTIONS (1)
  - DEPRESSED LEVEL OF CONSCIOUSNESS [None]
